FAERS Safety Report 5061152-6 (Version None)
Quarter: 2006Q3

REPORT INFORMATION
  Report Type: 
  Country: None (occurrence: None)
  Receive Date: 20060725
  Receipt Date: 20060325
  Transmission Date: 20061208
  Serious: Yes (Hospitalization, Other)
  Sender: FDA-Public Use
  Company Number: PHMT2006CA00929

PATIENT
  Age: 75 Year
  Sex: Female

DRUGS (6)
  1. EXELON [Suspect]
     Indication: DEMENTIA ALZHEIMER'S TYPE
     Dosage: 6 MG
     Route: 048
     Dates: start: 20051013
  2. OPHTHALMOLOGICALS [Concomitant]
  3. ASPIRIN [Concomitant]
     Dosage: 80 MG
  4. SERAX [Concomitant]
     Dosage: 10 MG PRN
  5. ACETAMINOPHEN [Concomitant]
     Dosage: UNK, PRN
  6. BRIMONIDINE TARTRATE [Concomitant]

REACTIONS (9)
  - ACTIVATED PARTIAL THROMBOPLASTIN TIME SHORTENED [None]
  - ARTERIOSCLEROSIS [None]
  - ATRIOVENTRICULAR EXTRASYSTOLES [None]
  - BRADYARRHYTHMIA [None]
  - CAROTID ARTERY STENOSIS [None]
  - CEREBRAL ISCHAEMIA [None]
  - COMPUTERISED TOMOGRAM ABNORMAL [None]
  - RED CELL DISTRIBUTION WIDTH INCREASED [None]
  - SYNCOPE [None]
